FAERS Safety Report 18870841 (Version 1)
Quarter: 2021Q1

REPORT INFORMATION
  Report Type: Spontaneous
  Country: US (occurrence: US)
  Receive Date: 20210210
  Receipt Date: 20210210
  Transmission Date: 20210420
  Serious: No
  Sender: FDA-Public Use
  Company Number: US-APOTEX-2021AP002487

PATIENT
  Sex: Female

DRUGS (1)
  1. TRAVOPROST. [Suspect]
     Active Substance: TRAVOPROST
     Indication: GLAUCOMA
     Dosage: 2 GTT DROPS, Q.H.S. (1 DROP IN EACH EYE DAILY)
     Route: 047

REACTIONS (6)
  - Product delivery mechanism issue [Unknown]
  - Product container issue [Unknown]
  - No adverse event [Unknown]
  - Incorrect dose administered [Unknown]
  - Product design issue [Unknown]
  - Product substitution issue [Unknown]
